FAERS Safety Report 6021561-5 (Version None)
Quarter: 2008Q4

REPORT INFORMATION
  Report Type: 
  Country: None (occurrence: None)
  Receive Date: 20081229
  Receipt Date: 20081219
  Transmission Date: 20090506
  Serious: Yes (Death)
  Sender: FDA-Public Use
  Company Number: TR-GENENTECH-274329

PATIENT
  Age: 40 Year
  Sex: Male

DRUGS (1)
  1. RAPTIVA [Suspect]
     Indication: PSORIASIS
     Dosage: UNK

REACTIONS (3)
  - HEPATIC FAILURE [None]
  - INFECTION [None]
  - RENAL FAILURE [None]
